FAERS Safety Report 8994618 (Version 1)
Quarter: 2012Q4

REPORT INFORMATION
  Report Type: Spontaneous
  Country: US (occurrence: None)
  Receive Date: 20121228
  Receipt Date: 20121228
  Transmission Date: 20130627
  Serious: Yes (Other)
  Sender: FDA-Public Use
  Company Number: None

PATIENT
  Age: 62 Year
  Sex: Female
  Weight: 54.43 kg

DRUGS (1)
  1. FENTANYL TRANSDERMAL SYSTEM [Suspect]
     Dosage: 100 mcg # 10  change every 3 day Transdermal
     Dates: start: 20121128, end: 20121228

REACTIONS (4)
  - Product substitution issue [None]
  - Vomiting [None]
  - Panic attack [None]
  - Dyspnoea [None]
